FAERS Safety Report 15937593 (Version 1)
Quarter: 2019Q1

REPORT INFORMATION
  Report Type: Spontaneous
  Country: US (occurrence: US)
  Receive Date: 20190208
  Receipt Date: 20190208
  Transmission Date: 20190417
  Serious: No
  Sender: FDA-Public Use
  Company Number: US-ICU MEDICAL, INC.-ICU2018US00030

PATIENT

DRUGS (1)
  1. 1.5% GLYCINE IRRIGATION USP (3000 ML) [Suspect]
     Active Substance: GLYCINE
     Indication: BLADDER IRRIGATION
     Dosage: 3000 MILLILITER
     Dates: start: 20180921, end: 20180921

REACTIONS (2)
  - Drug ineffective [Recovered/Resolved]
  - No adverse event [Unknown]

NARRATIVE: CASE EVENT DATE: 20180921
